FAERS Safety Report 8272650-6 (Version None)
Quarter: 2012Q2

REPORT INFORMATION
  Report Type: 
  Country: None (occurrence: None)
  Receive Date: 20120410
  Receipt Date: 20120329
  Transmission Date: 20120825
  Serious: Yes (Hospitalization, Other)
  Sender: FDA-Public Use
  Company Number: US-ELI_LILLY_AND_COMPANY-US201204000109

PATIENT
  Sex: Male

DRUGS (6)
  1. HUMULIN N [Suspect]
     Indication: DIABETES MELLITUS
     Dosage: 30 U, EACH MORNING
  2. HUMULIN N [Suspect]
     Dosage: 30 U, EACH MORNING
  3. HUMULIN N [Suspect]
     Dosage: 20 U, AT NIGHT
  4. HUMULIN R [Suspect]
     Dosage: 8 U, QID
  5. HUMULIN N [Suspect]
     Dosage: 20 U, AT NIGHT
  6. HUMULIN R [Suspect]
     Indication: DIABETES MELLITUS
     Dosage: 8 U, QID

REACTIONS (10)
  - SPEECH DISORDER [None]
  - HEMIPARESIS [None]
  - DEMENTIA [None]
  - BLOOD GLUCOSE DECREASED [None]
  - MUSCLE TIGHTNESS [None]
  - NERVOUS SYSTEM DISORDER [None]
  - CEREBROVASCULAR ACCIDENT [None]
  - BLOOD GLUCOSE INCREASED [None]
  - INAPPROPRIATE SCHEDULE OF DRUG ADMINISTRATION [None]
  - MEMORY IMPAIRMENT [None]
